FAERS Safety Report 13839574 (Version 1)
Quarter: 2017Q3

REPORT INFORMATION
  Report Type: Spontaneous
  Country: US (occurrence: US)
  Receive Date: 20170805
  Receipt Date: 20170805
  Transmission Date: 20171127
  Serious: No
  Sender: FDA-Public Use
  Company Number: None

PATIENT
  Age: 67 Year
  Sex: Male

DRUGS (12)
  1. ACETAMINOPHEN. [Concomitant]
     Active Substance: ACETAMINOPHEN
  2. BUMETANIDE. [Concomitant]
     Active Substance: BUMETANIDE
  3. PHYTONADIONE. [Concomitant]
     Active Substance: PHYTONADIONE
  4. FLUCONAZOLE. [Suspect]
     Active Substance: FLUCONAZOLE
     Indication: SEPTIC SHOCK
     Dosage: 400 DAILY NG
     Dates: start: 20170123, end: 20170207
  5. FILGRASTIN [Concomitant]
  6. ACYCLOVIR. [Concomitant]
     Active Substance: ACYCLOVIR
  7. METOPROLOL TARTRATE. [Concomitant]
     Active Substance: METOPROLOL TARTRATE
  8. VANCOMYCIN [Concomitant]
     Active Substance: VANCOMYCIN
  9. FAMOTIDINE. [Concomitant]
     Active Substance: FAMOTIDINE
  10. MEROPENEM. [Concomitant]
     Active Substance: MEROPENEM
  11. AMIODARONE [Concomitant]
     Active Substance: AMIODARONE
  12. INSULIN ASPART [Concomitant]
     Active Substance: INSULIN ASPART

REACTIONS (3)
  - Transaminases increased [None]
  - Alanine aminotransferase increased [None]
  - Aspartate aminotransferase increased [None]

NARRATIVE: CASE EVENT DATE: 20170207
